FAERS Safety Report 8465165-3 (Version None)
Quarter: 2012Q2

REPORT INFORMATION
  Report Type: 
  Country: None (occurrence: None)
  Receive Date: 20120626
  Receipt Date: 20120618
  Transmission Date: 20120825
  Serious: Yes (Hospitalization, Other)
  Sender: FDA-Public Use
  Company Number: PHHY2010AU77040

PATIENT
  Sex: Female

DRUGS (24)
  1. CLOZARIL [Suspect]
     Dosage: 150 MG, UNK
     Dates: start: 20110320
  2. CLOZARIL [Suspect]
     Dosage: 100 MG, BID
     Dates: start: 20120101
  3. RAMIPRIL [Concomitant]
     Dosage: 2.5 MG, UNK
  4. FUROSEMIDE [Concomitant]
     Dosage: 40 MG, UNK
  5. METFORMIN HCL [Concomitant]
     Dosage: 1 G, BID
  6. LANTUS [Concomitant]
     Dosage: 74 IU, DAILY
  7. ASPIRIN [Concomitant]
     Dosage: 100 MG, UNK
  8. BETA BLOCKING AGENTS [Concomitant]
  9. INSULIN [Concomitant]
  10. CLOZARIL [Suspect]
     Dosage: 175 MG, UNK
     Dates: end: 20110210
  11. VITAMIN D [Concomitant]
     Dosage: 75 UG, UNK
  12. PANTOPRAZOLE [Concomitant]
     Dosage: 40 MG, UNK
  13. CLOPIDOGREL [Concomitant]
     Dosage: 75 MG, UNK
  14. CLOZARIL [Suspect]
     Indication: SCHIZOPHRENIA
     Dosage: 400 MG
     Dates: start: 19940805
  15. CLOZARIL [Suspect]
     Dosage: 500 MG
     Route: 048
     Dates: start: 20101101, end: 20110320
  16. DIGOXIN [Concomitant]
     Dosage: 15 UG, UNK
  17. ARIPIPRAZOLE [Concomitant]
     Dosage: 30 MG, UNK
  18. COLOXYL WITH SENNA [Concomitant]
     Dosage: 1 DF, BID
  19. DULOXETIME HYDROCHLORIDE [Concomitant]
     Dosage: 60 MG
  20. OLANZAPINE [Concomitant]
  21. CHLORPROMAZINE HCL [Concomitant]
     Dosage: 100 MG, TID
  22. BISOPROLOL FUMARATE [Concomitant]
     Dosage: 5 MG, UNK
  23. ROSUVASTATIN [Concomitant]
     Dosage: 40 MG, UNK
  24. RISPERIDONE [Concomitant]
     Dosage: 3 MG, QD

REACTIONS (15)
  - MYOCARDIAL INFARCTION [None]
  - ELECTROCARDIOGRAM ABNORMAL [None]
  - LEFT VENTRICULAR DYSFUNCTION [None]
  - DIZZINESS [None]
  - ELECTROCARDIOGRAM QT PROLONGED [None]
  - SEPSIS [None]
  - CONFUSIONAL STATE [None]
  - DELIRIUM [None]
  - PSYCHOTIC DISORDER [None]
  - LEFT VENTRICULAR HYPERTROPHY [None]
  - ELECTROCARDIOGRAM ST SEGMENT ELEVATION [None]
  - URINARY TRACT INFECTION [None]
  - HYPERGLYCAEMIA [None]
  - CATATONIA [None]
  - SYNCOPE [None]
